FAERS Safety Report 6144058-0 (Version None)
Quarter: 2009Q2

REPORT INFORMATION
  Report Type: 
  Country: None (occurrence: None)
  Receive Date: 20090406
  Receipt Date: 20090304
  Transmission Date: 20091009
  Serious: No
  Sender: FDA-Public Use
  Company Number: US-BAYER-200915416NA

PATIENT
  Age: 82 Year
  Sex: Male

DRUGS (11)
  1. LEVITRA [Suspect]
     Indication: ERECTILE DYSFUNCTION
     Dosage: UNIT DOSE: 10 MG
     Route: 048
     Dates: start: 20090101
  2. LEVITRA [Suspect]
     Dosage: UNIT DOSE: 20 MG
     Route: 048
     Dates: start: 20090101
  3. ASPIRIN [Concomitant]
  4. SIMVASTATIN [Concomitant]
  5. AMLODIPINE BESYLATE [Concomitant]
  6. LISINOPRIL [Concomitant]
  7. GABAPENTIN [Concomitant]
  8. DICLOFENAC [Concomitant]
  9. PLAVIX [Concomitant]
  10. CITALOPRAM [Concomitant]
  11. CILOSTAZOL [Concomitant]

REACTIONS (1)
  - ERECTILE DYSFUNCTION [None]
